FAERS Safety Report 8828708 (Version 4)
Quarter: 2013Q1

REPORT INFORMATION
  Report Type: Other
  Country: GB (occurrence: GB)
  Receive Date: 20121008
  Receipt Date: 20130102
  Transmission Date: 20140127
  Serious: Yes (Hospitalization)
  Sender: FDA-Public Use
  Company Number: GB-ALEXION PHARMACEUTICALS INC.-A201201857

PATIENT
  Sex: Female
  Weight: 88.9 kg

DRUGS (3)
  1. SOLIRIS 300MG [Suspect]
     Indication: PAROXYSMAL NOCTURNAL HAEMOGLOBINURIA
     Dosage: 900 MG, Q2W
     Route: 042
  2. PENICILLIN [Concomitant]
     Indication: PROPHYLAXIS
     Dosage: 250 MG, QID
     Route: 048
  3. WARFARIN [Concomitant]
     Dosage: UNK

REACTIONS (8)
  - Pancytopenia [Unknown]
  - Dyspnoea [Unknown]
  - Pain [Unknown]
  - C-reactive protein increased [Unknown]
  - Infection [Unknown]
  - Pyrexia [Unknown]
  - Haemolysis [Unknown]
  - Chills [Unknown]
